FAERS Safety Report 6583420-9 (Version None)
Quarter: 2010Q1

REPORT INFORMATION
  Report Type: 
  Country: None (occurrence: None)
  Receive Date: 20100216
  Receipt Date: 20100210
  Transmission Date: 20100710
  Serious: Yes (Other)
  Sender: FDA-Public Use
  Company Number: US-SANOFI-AVENTIS-2010SA008424

PATIENT
  Age: 68 Year
  Sex: Male

DRUGS (5)
  1. LANTUS [Suspect]
     Indication: TYPE 2 DIABETES MELLITUS
     Dosage: (UNKNOWN) TO 25 UNITS HS, THEN 20 UNITS HS AND CURRENTLY 30 UNITS HS. DOSE:50 UNIT(S)
     Route: 058
     Dates: start: 20060101, end: 20091201
  2. LANTUS [Suspect]
     Dosage: DOSE:25 UNIT(S)
     Route: 058
     Dates: start: 20091201
  3. LANTUS [Suspect]
     Dosage: DOSE:20 UNIT(S)
     Route: 058
  4. LANTUS [Suspect]
     Dosage: DOSE:30 UNIT(S)
     Route: 058
  5. HUMALOG [Concomitant]
     Indication: TYPE 2 DIABETES MELLITUS
     Dosage: SLIDING SCALE

REACTIONS (4)
  - BLOOD GLUCOSE INCREASED [None]
  - HYPOGLYCAEMIA [None]
  - HYPOGLYCAEMIC UNCONSCIOUSNESS [None]
  - ROAD TRAFFIC ACCIDENT [None]
